FAERS Safety Report 11167277 (Version 1)
Quarter: 2015Q2

REPORT INFORMATION
  Report Type: Spontaneous
  Country: DE (occurrence: DE)
  Receive Date: 20150605
  Receipt Date: 20150605
  Transmission Date: 20150821
  Serious: Yes (Congenital Anomaly)
  Sender: FDA-Public Use
  Company Number: DE-SUN PHARMACEUTICAL INDUSTRIES LTD-2015R1-97927

PATIENT

DRUGS (2)
  1. CALCITRIOL. [Concomitant]
     Active Substance: CALCITRIOL
     Indication: PRODUCT USED FOR UNKNOWN INDICATION
     Dosage: UNK
     Route: 064
  2. ALLOPURINOL. [Suspect]
     Active Substance: ALLOPURINOL
     Indication: HYPERURICAEMIA
     Dosage: 50 MG, DAILY
     Route: 064

REACTIONS (3)
  - Congenital hypoparathyroidism [Unknown]
  - Premature baby [Unknown]
  - Foetal exposure during pregnancy [Recovered/Resolved]
